FAERS Safety Report 14826072 (Version 1)
Quarter: 2018Q2

REPORT INFORMATION
  Report Type: Spontaneous
  Country: US (occurrence: US)
  Receive Date: 20180403
  Receipt Date: 20180403
  Transmission Date: 20180711
  Serious: Yes (Disabling, Other)
  Sender: FDA-Public Use
  Company Number: None

PATIENT
  Age: 29 Year
  Sex: Female
  Weight: 68.85 kg

DRUGS (2)
  1. PERCOCET [Suspect]
     Active Substance: ACETAMINOPHEN\OXYCODONE HYDROCHLORIDE
     Indication: INTERVERTEBRAL DISC PROTRUSION
     Dosage: ?          QUANTITY:1 TABLET(S);?
     Route: 048
     Dates: start: 20180103, end: 20180303
  2. PERCOCET [Suspect]
     Active Substance: ACETAMINOPHEN\OXYCODONE HYDROCHLORIDE
     Indication: INTERVERTEBRAL DISC DEGENERATION
     Dosage: ?          QUANTITY:1 TABLET(S);?
     Route: 048
     Dates: start: 20180103, end: 20180303

REACTIONS (10)
  - Abdominal discomfort [None]
  - Gastrooesophageal reflux disease [None]
  - Product solubility abnormal [None]
  - Nausea [None]
  - Headache [None]
  - Product taste abnormal [None]
  - Vomiting [None]
  - Drug ineffective [None]
  - Feeling abnormal [None]
  - Product substitution issue [None]

NARRATIVE: CASE EVENT DATE: 20180105
